FAERS Safety Report 14975408 (Version 1)
Quarter: 2018Q2

REPORT INFORMATION
  Report Type: Spontaneous
  Country: GR (occurrence: GR)
  Receive Date: 20180605
  Receipt Date: 20180605
  Transmission Date: 20180711
  Serious: Yes (Hospitalization, Other)
  Sender: FDA-Public Use
  Company Number: GR-MYLANLABS-2018M1036881

PATIENT
  Age: 54 Year
  Sex: Female

DRUGS (14)
  1. LIPOSOMAL DOXORUBICIN HYDROCHLORIDE [Suspect]
     Active Substance: DOXORUBICIN HYDROCHLORIDE
     Indication: INVASIVE DUCTAL BREAST CARCINOMA
     Dosage: 1 DF, CYCLE (1 IN 1 CYCLICAL)
     Route: 065
     Dates: start: 2008
  2. ERIBULIN [Suspect]
     Active Substance: ERIBULIN
     Indication: INVASIVE DUCTAL BREAST CARCINOMA
     Dosage: 1 DF, CYCLE (1 IN 1 CYCLICAL)
     Route: 065
     Dates: start: 2008
  3. NOVANTRONE [Suspect]
     Active Substance: MITOXANTRONE HYDROCHLORIDE
     Indication: INVASIVE DUCTAL BREAST CARCINOMA
     Dosage: 1 DF, CYCLE (1 IN 1 CYCLICAL)
     Route: 065
  4. ZOLEDRONIC ACID [Suspect]
     Active Substance: ZOLEDRONIC ACID
     Indication: INVASIVE DUCTAL BREAST CARCINOMA
     Dosage: 1 DF, CYCLE (1 IN 1 CYCLICAL)
     Route: 065
     Dates: start: 2008
  5. PACLITAXEL. [Suspect]
     Active Substance: PACLITAXEL
     Indication: INVASIVE DUCTAL BREAST CARCINOMA
     Dosage: 1 DF, CYCLE (1 IN 1 CYCLICAL)
     Route: 065
     Dates: start: 2008
  6. DOCETAXEL. [Suspect]
     Active Substance: DOCETAXEL
     Indication: INVASIVE DUCTAL BREAST CARCINOMA
     Dosage: 1 DF, CYCLE (1 IN 1 CYCLICAL)
     Route: 065
     Dates: start: 2008
  7. GEMCITABINE [Suspect]
     Active Substance: GEMCITABINE\GEMCITABINE HYDROCHLORIDE
     Indication: INVASIVE DUCTAL BREAST CARCINOMA
     Dosage: 1 DF, CYCLE (1 IN 1 CYCLICAL)
     Route: 065
     Dates: start: 2008
  8. INIPARIB [Suspect]
     Active Substance: INIPARIB
     Indication: INVASIVE DUCTAL BREAST CARCINOMA
     Dosage: 1 DF, CYCLE (1 IN 1 CYCLICAL)
     Route: 065
     Dates: start: 2008
  9. CARBOPLATIN. [Suspect]
     Active Substance: CARBOPLATIN
     Indication: INVASIVE DUCTAL BREAST CARCINOMA
     Dosage: 1 DF, CYCLE (1 IN 1 CYCLICAL)
     Route: 065
  10. CAPECITABINE. [Suspect]
     Active Substance: CAPECITABINE
     Indication: INVASIVE DUCTAL BREAST CARCINOMA
     Dosage: 1 DF, CYCLE (1 IN 1 CYCLICAL)
     Route: 065
     Dates: start: 2008
  11. CYCLOPHOSPHAMID [Suspect]
     Active Substance: CYCLOPHOSPHAMIDE
     Indication: INVASIVE DUCTAL BREAST CARCINOMA
     Dosage: UNK UNK, CYCLE (UNKNOWN REGIMEN)
     Route: 065
  12. VINORELBINE [Suspect]
     Active Substance: VINORELBINE\VINORELBINE TARTRATE
     Indication: INVASIVE DUCTAL BREAST CARCINOMA
     Dosage: 1 DF, CYCLE (1 IN 1 CYCLICAL)
     Route: 065
     Dates: start: 2008
  13. 5-FLUOROURACIL                     /00098801/ [Suspect]
     Active Substance: FLUOROURACIL
     Indication: INVASIVE DUCTAL BREAST CARCINOMA
     Dosage: 1 DF, CYCLE (1 IN 1 CYCLICAL)
     Route: 065
  14. BEVACIZUMAB. [Suspect]
     Active Substance: BEVACIZUMAB
     Indication: INVASIVE DUCTAL BREAST CARCINOMA
     Dosage: 1 DF, CYCLE (1 IN 1 CYCLICAL)
     Route: 065
     Dates: start: 2008

REACTIONS (6)
  - Product use in unapproved indication [Unknown]
  - Invasive ductal breast carcinoma [Unknown]
  - Malignant neoplasm progression [Unknown]
  - Metastases to bone marrow [Unknown]
  - Anaemia [Unknown]
  - Thrombocytopenia [Unknown]

NARRATIVE: CASE EVENT DATE: 2008
